FAERS Safety Report 9272958 (Version 7)
Quarter: 2014Q2

REPORT INFORMATION
  Report Type: Spontaneous
  Country: US (occurrence: US)
  Receive Date: 20130506
  Receipt Date: 20140404
  Transmission Date: 20141212
  Serious: Yes (Other)
  Sender: FDA-Public Use
  Company Number: US-009507513-1304USA017120

PATIENT
  Sex: Male
  Weight: 172.34 kg

DRUGS (9)
  1. PROPECIA [Suspect]
     Indication: ALOPECIA
     Dosage: 1 MG, QD
     Route: 048
     Dates: start: 20100520, end: 20110511
  2. TRAMADOL HYDROCHLORIDE [Concomitant]
     Indication: PAIN
     Dosage: UNK
     Dates: start: 20090508
  3. CYCLOBENZAPRINE HYDROCHLORIDE [Concomitant]
     Indication: PAIN
     Dosage: UNK
     Dates: start: 20090421
  4. MIRAPEX [Concomitant]
     Indication: RESTLESS LEGS SYNDROME
     Dosage: UNK
     Dates: start: 20081103
  5. BENAZEPRIL HYDROCHLORIDE [Concomitant]
     Indication: HYPERTENSION
     Dosage: 10 MG, QD
     Dates: end: 20130410
  6. OMNARIS [Concomitant]
     Indication: HYPERSENSITIVITY
     Dosage: UNK
     Dates: start: 20110111
  7. LISINOPRIL [Concomitant]
     Indication: HYPERTENSION
     Dosage: UNK
     Dates: start: 20070309
  8. ENDOCET [Concomitant]
     Indication: PAIN
     Dosage: UNK
     Dates: start: 20070713
  9. PROMETHAZINE [Concomitant]
     Indication: HYPERSENSITIVITY
     Dosage: UNK
     Dates: start: 20071012

REACTIONS (21)
  - Gastric bypass [Unknown]
  - Deafness [Unknown]
  - Prostatomegaly [Unknown]
  - Anxiety [Unknown]
  - Insomnia [Unknown]
  - Osteoarthritis [Unknown]
  - Sensory loss [Unknown]
  - Dyspepsia [Unknown]
  - Urine leukocyte esterase positive [Unknown]
  - Knee operation [Unknown]
  - Toe operation [Unknown]
  - Testicular disorder [Unknown]
  - Sleep apnoea syndrome [Unknown]
  - Headache [Unknown]
  - Arthralgia [Unknown]
  - Cerumen impaction [Unknown]
  - Hypogonadism [Unknown]
  - Joint effusion [Unknown]
  - Loss of libido [Unknown]
  - Depression [Unknown]
  - Erectile dysfunction [Not Recovered/Not Resolved]
